FAERS Safety Report 8141200-7 (Version None)
Quarter: 2012Q1

REPORT INFORMATION
  Report Type: 
  Country: None (occurrence: None)
  Receive Date: 20120216
  Receipt Date: 20120208
  Transmission Date: 20120608
  Serious: Yes (Other)
  Sender: FDA-Public Use
  Company Number: JP-B.I. PHARMACEUTICALS,INC./RIDGEFIELD-2012-BP-01891NB

PATIENT
  Sex: Male

DRUGS (12)
  1. MAGMITT [Concomitant]
     Dosage: 660 MG
     Route: 065
  2. MUCOSOLVAN [Concomitant]
     Dosage: 45 MG
     Route: 065
  3. LANSOPRAZOLE [Concomitant]
     Dosage: 15 MG
     Route: 065
  4. CEFAZOLIN SODIUM [Concomitant]
     Dosage: 6 G
     Route: 065
  5. LIPITOR [Concomitant]
     Dosage: 50 MG
     Route: 065
  6. SUNRYTHM [Concomitant]
     Dosage: 75 MG
     Route: 065
  7. KEPPRA [Concomitant]
     Dosage: 1000 MG
     Route: 065
  8. ASPIRIN [Concomitant]
     Dosage: 100 MG
     Route: 065
  9. PHENYTOIN SODIUM CAP [Concomitant]
     Dosage: 240 MG
     Route: 065
  10. PRADAXA [Suspect]
     Indication: ATRIAL FIBRILLATION
     Dosage: 300 MG
     Route: 065
     Dates: end: 20120131
  11. LASIX [Concomitant]
     Route: 065
  12. ISOSORBIDE MONONITRATE [Concomitant]
     Dosage: 20 MG
     Route: 065

REACTIONS (6)
  - MUSCLE SPASMS [None]
  - WRONG TECHNIQUE IN DRUG USAGE PROCESS [None]
  - SUBARACHNOID HAEMORRHAGE [None]
  - ACTIVATED PARTIAL THROMBOPLASTIN TIME PROLONGED [None]
  - CEREBRAL INFARCTION [None]
  - LOSS OF CONSCIOUSNESS [None]
